FAERS Safety Report 5900694-5 (Version None)
Quarter: 2008Q3

REPORT INFORMATION
  Report Type: 
  Country: None (occurrence: None)
  Receive Date: 20080926
  Receipt Date: 20080919
  Transmission Date: 20090109
  Serious: Yes (Other)
  Sender: FDA-Public Use
  Company Number: AU-PFIZER INC-2008079820

PATIENT
  Age: 50 Year
  Sex: Female

DRUGS (1)
  1. LIPITOR [Suspect]
     Dates: start: 20080918

REACTIONS (2)
  - DYSPNOEA [None]
  - SWELLING FACE [None]
